FAERS Safety Report 5645584-0 (Version None)
Quarter: 2008Q1

REPORT INFORMATION
  Report Type: 
  Country: None (occurrence: None)
  Receive Date: 20080229
  Receipt Date: 20080222
  Transmission Date: 20080703
  Serious: Yes (Hospitalization)
  Sender: FDA-Public Use
  Company Number: DE-BAYER-200813859GPV

PATIENT
  Age: 68 Year
  Sex: Female
  Weight: 65 kg

DRUGS (1)
  1. ULTRAVIST 300 [Suspect]
     Indication: COMPUTERISED TOMOGRAM
     Dosage: TOTAL DAILY DOSE: 140 ML
     Route: 042
     Dates: start: 20080207, end: 20080207

REACTIONS (6)
  - BLOOD PRESSURE DECREASED [None]
  - FLUSHING [None]
  - NAUSEA [None]
  - PHARYNGOLARYNGEAL DISCOMFORT [None]
  - PRURITUS GENERALISED [None]
  - THROAT TIGHTNESS [None]
